FAERS Safety Report 24940449 (Version 1)
Quarter: 2025Q1

REPORT INFORMATION
  Report Type: Spontaneous
  Country: CA (occurrence: CA)
  Receive Date: 20250207
  Receipt Date: 20250207
  Transmission Date: 20250409
  Serious: Yes (Other)
  Sender: CELLTRION
  Company Number: CA-CELLTRION INC.-2024CA027907

PATIENT

DRUGS (2)
  1. STEQEYMA [Suspect]
     Active Substance: USTEKINUMAB-STBA
     Indication: Psoriasis
     Dosage: 90 MG, Q4WEEKS; THERAPY DURATION: LONGTERM (THERAPY NOT YET STARTED)
     Route: 058
  2. STEQEYMA [Suspect]
     Active Substance: USTEKINUMAB-STBA
     Indication: Psoriatic arthropathy

REACTIONS (2)
  - Cardiac operation [Unknown]
  - Off label use [Unknown]

NARRATIVE: CASE EVENT DATE: 20250129
